FAERS Safety Report 17290572 (Version 1)
Quarter: 2020Q1

REPORT INFORMATION
  Report Type: Spontaneous
  Country: US (occurrence: US)
  Receive Date: 20200121
  Receipt Date: 20200121
  Transmission Date: 20200409
  Serious: No
  Sender: FDA-Public Use
  Company Number: US-SUN PHARMACEUTICAL INDUSTRIES LTD-2019R1-224650

PATIENT
  Sex: Female

DRUGS (4)
  1. UPTRAVI [Concomitant]
     Active Substance: SELEXIPAG
     Dosage: 1600 MICROGRAM
     Route: 065
  2. XARELTO [Concomitant]
     Active Substance: RIVAROXABAN
     Dosage: UNK
  3. TADALAFIL. [Concomitant]
     Active Substance: TADALAFIL
     Dosage: UNK
  4. AMBRISENTAN [Suspect]
     Active Substance: AMBRISENTAN
     Indication: PRODUCT USED FOR UNKNOWN INDICATION
     Dosage: 10 MILLIGRAM, QD
     Route: 048
     Dates: start: 20190919

REACTIONS (6)
  - Nausea [Unknown]
  - Pain in jaw [Unknown]
  - Nasal congestion [Unknown]
  - Sinus operation [Unknown]
  - Nasopharyngitis [Unknown]
  - Dyspepsia [Unknown]

NARRATIVE: CASE EVENT DATE: 2019
